FAERS Safety Report 8001975-4 (Version None)
Quarter: 2011Q4

REPORT INFORMATION
  Report Type: 
  Country: None (occurrence: None)
  Receive Date: 20111222
  Receipt Date: 20111216
  Transmission Date: 20120403
  Serious: Yes (Other)
  Sender: FDA-Public Use
  Company Number: NO-TEVA-313985ISR

PATIENT
  Age: 54 Year
  Sex: Male

DRUGS (2)
  1. METHOTREXATE [Suspect]
     Dosage: 15 MG, UNK
  2. FOLSYRE [Concomitant]
     Dosage: UNK
     Dates: start: 20050101

REACTIONS (4)
  - MYOCLONUS [None]
  - MONOPARESIS [None]
  - DYSKINESIA [None]
  - HYPERREFLEXIA [None]
